FAERS Safety Report 25652097 (Version 1)
Quarter: 2025Q3

REPORT INFORMATION
  Report Type: Spontaneous
  Country: GB (occurrence: EU)
  Receive Date: 20250806
  Receipt Date: 20250806
  Transmission Date: 20251020
  Serious: Yes (Death)
  Sender: BIOGEN
  Company Number: GB-BIOGEN-2025BI01319537

PATIENT

DRUGS (1)
  1. TYSABRI [Suspect]
     Active Substance: NATALIZUMAB
     Indication: Product used for unknown indication
     Route: 050

REACTIONS (2)
  - Death [Fatal]
  - Rebound effect [Unknown]
